FAERS Safety Report 4585743-1 (Version None)
Quarter: 2005Q1

REPORT INFORMATION
  Report Type: 
  Country: None (occurrence: None)
  Receive Date: 20050210
  Receipt Date: 20050126
  Transmission Date: 20050727
  Serious: Yes (Other)
  Sender: FDA-Public Use
  Company Number: 601746

PATIENT
  Age: 16 Month
  Sex: Male
  Weight: 13 kg

DRUGS (4)
  1. ADVATE (ANTITHEMOPHILIC FACTOR (RECOMBINANT), PLASMA/ ALBUMIN FREE MET [Suspect]
     Indication: HAEMARTHROSIS
     Dosage: 250 IU; PRN; INTRAVENOUS
     Route: 042
     Dates: start: 20040801, end: 20050110
  2. ADVATE (ANTITHEMOPHILIC FACTOR (RECOMBINANT), PLASMA/ ALBUMIN FREE MET [Suspect]
     Indication: HAEMOPHILIA
     Dosage: 250 IU; PRN; INTRAVENOUS
     Route: 042
     Dates: start: 20040801, end: 20050110
  3. M-M-R II [Concomitant]
  4. INFLUENZA [Concomitant]

REACTIONS (7)
  - ANTI FACTOR VIII ANTIBODY POSITIVE [None]
  - CONDITION AGGRAVATED [None]
  - HAEMARTHROSIS [None]
  - HAEMATOMA [None]
  - HAEMORRHAGE [None]
  - INJURY [None]
  - THERAPY NON-RESPONDER [None]
